FAERS Safety Report 8323407-9 (Version None)
Quarter: 2012Q2

REPORT INFORMATION
  Report Type: 
  Country: None (occurrence: None)
  Receive Date: 20120430
  Receipt Date: 20120424
  Transmission Date: 20120825
  Serious: Yes (Other)
  Sender: FDA-Public Use
  Company Number: DE-ELI_LILLY_AND_COMPANY-DE201204003195

PATIENT
  Age: 57 Year
  Sex: Female

DRUGS (1)
  1. BYDUREON [Suspect]
     Dosage: UNK, WEEKLY (1/W)
     Route: 058
     Dates: start: 20110901

REACTIONS (1)
  - KNEE ARTHROPLASTY [None]
